FAERS Safety Report 7733859-0 (Version None)
Quarter: 2011Q3

REPORT INFORMATION
  Report Type: 
  Country: None (occurrence: None)
  Receive Date: 20110907
  Receipt Date: 20110905
  Transmission Date: 20111222
  Serious: Yes (Other)
  Sender: FDA-Public Use
  Company Number: JP-PFIZER INC-2011203413

PATIENT
  Age: 52 Year
  Sex: Female

DRUGS (3)
  1. VARENICLINE TARTRATE [Suspect]
     Dosage: 1 MG, DAILY
     Route: 048
     Dates: start: 20110830, end: 20110830
  2. MEIACT [Concomitant]
     Dosage: UNK
     Route: 048
     Dates: start: 20110830
  3. ATOLANT [Concomitant]
     Dosage: UNK

REACTIONS (1)
  - DRUG ERUPTION [None]
